FAERS Safety Report 14874021 (Version 1)
Quarter: 2018Q2

REPORT INFORMATION
  Report Type: Spontaneous
  Country: US (occurrence: US)
  Receive Date: 20180510
  Receipt Date: 20180510
  Transmission Date: 20180711
  Serious: No
  Sender: FDA-Public Use
  Company Number: US-PERRIGO-18US000476

PATIENT
  Age: 1 Month
  Sex: Male
  Weight: 3.63 kg

DRUGS (3)
  1. MICONAZOLE 3 COMBINATION PACK [Suspect]
     Active Substance: MICONAZOLE NITRATE
     Indication: MATERNAL EXPOSURE DURING BREAST FEEDING
     Dosage: UNKNOWN, UNKNOWN
     Route: 048
     Dates: start: 20180111, end: 20180115
  2. MULTIVITAMIN                       /07504101/ [Concomitant]
     Active Substance: VITAMINS
     Indication: SUPPLEMENTATION THERAPY
     Dosage: UNK
     Route: 048
     Dates: start: 201712
  3. MICONAZOLE 3 COMBINATION PACK [Suspect]
     Active Substance: MICONAZOLE NITRATE
     Indication: MATERNAL EXPOSURE DURING BREAST FEEDING
     Dosage: UNKNOWN, UNKNOWN
     Route: 048
     Dates: start: 20180111, end: 20180113

REACTIONS (1)
  - Maternal exposure during breast feeding [Recovered/Resolved]

NARRATIVE: CASE EVENT DATE: 20180111
